FAERS Safety Report 5387749-1 (Version None)
Quarter: 2007Q3

REPORT INFORMATION
  Report Type: 
  Country: None (occurrence: None)
  Receive Date: 20070716
  Receipt Date: 20070710
  Transmission Date: 20080115
  Serious: Yes (Other)
  Sender: FDA-Public Use
  Company Number: B0478831A

PATIENT
  Age: 71 Year
  Sex: Male

DRUGS (3)
  1. AVODART [Suspect]
     Indication: BENIGN PROSTATIC HYPERPLASIA
     Dosage: .5MG PER DAY
     Route: 048
     Dates: start: 20070522, end: 20070525
  2. CONTROLOC [Concomitant]
     Route: 065
     Dates: start: 20070101
  3. TENOX [Concomitant]
     Dates: start: 20060201

REACTIONS (3)
  - ERYTHEMA [None]
  - PYREXIA [None]
  - SKIN BURNING SENSATION [None]
